FAERS Safety Report 17665347 (Version 5)
Quarter: 2022Q1

REPORT INFORMATION
  Report Type: Spontaneous
  Country: GB (occurrence: GB)
  Receive Date: 20200414
  Receipt Date: 20220228
  Transmission Date: 20220423
  Serious: Yes (Death, Hospitalization)
  Sender: FDA-Public Use
  Company Number: None

PATIENT
  Age: 55 Year
  Sex: Male

DRUGS (10)
  1. RISPERIDONE [Suspect]
     Active Substance: RISPERIDONE
     Indication: Seizure
     Dosage: 12 MG, QD
     Route: 065
     Dates: start: 2004, end: 2019
  2. RISPERIDONE [Suspect]
     Active Substance: RISPERIDONE
     Indication: Seizure
     Dosage: 1500 UG (//2019)
     Route: 065
  3. RISPERIDONE [Suspect]
     Active Substance: RISPERIDONE
     Indication: Petit mal epilepsy
     Dosage: 3 MG FOR 9 YEARS
     Route: 048
     Dates: start: 2004
  4. RISPERIDONE [Suspect]
     Active Substance: RISPERIDONE
     Dosage: 4 MG, TID
     Route: 065
     Dates: start: 2004, end: 2019
  5. ZARONTIN [Concomitant]
     Active Substance: ETHOSUXIMIDE
     Indication: Blood pressure measurement
     Dosage: 260 MG, TID
     Route: 065
  6. ZARONTIN [Concomitant]
     Active Substance: ETHOSUXIMIDE
     Dosage: 780 MG
     Route: 065
  7. RAMIPRIL [Concomitant]
     Active Substance: RAMIPRIL
     Indication: Hypertension
     Dosage: UNK
     Route: 065
  8. RAMIPRIL [Concomitant]
     Active Substance: RAMIPRIL
     Dosage: 245
     Route: 065
  9. AMLODIPINE [Concomitant]
     Active Substance: AMLODIPINE BESYLATE
     Indication: Hypertension
     Dosage: UNK
     Route: 065
  10. AMLODIPINE [Concomitant]
     Active Substance: AMLODIPINE BESYLATE
     Dosage: 245
     Route: 065

REACTIONS (33)
  - Colon cancer [Fatal]
  - Gastric cancer [Fatal]
  - Pollakiuria [Fatal]
  - Hyperhidrosis [Fatal]
  - Breast enlargement [Fatal]
  - Dyskinesia [Fatal]
  - Somnolence [Fatal]
  - Rash pruritic [Fatal]
  - Feeling hot [Fatal]
  - Seizure [Fatal]
  - Abnormal weight gain [Fatal]
  - Dyspnoea [Fatal]
  - Vomiting [Fatal]
  - Product use in unapproved indication [Fatal]
  - Nausea [Fatal]
  - Insomnia [Fatal]
  - Off label use [Fatal]
  - Blood glucose increased [Fatal]
  - Gastric cancer [Fatal]
  - Lung neoplasm malignant [Fatal]
  - Colon cancer [Fatal]
  - Dizziness [Fatal]
  - Disturbance in attention [Fatal]
  - Urinary tract infection [Fatal]
  - Hypotension [Fatal]
  - Sleep apnoea syndrome [Fatal]
  - Increased appetite [Fatal]
  - Cough [Fatal]
  - Hyperglycaemia [Fatal]
  - Epilepsy [Fatal]
  - Vision blurred [Fatal]
  - Gynaecomastia [Fatal]
  - Pollakiuria [Fatal]

NARRATIVE: CASE EVENT DATE: 20040101
